FAERS Safety Report 18733894 (Version 1)
Quarter: 2021Q1

REPORT INFORMATION
  Report Type: Spontaneous
  Country: IE (occurrence: IE)
  Receive Date: 20210113
  Receipt Date: 20210113
  Transmission Date: 20210419
  Serious: Yes (Other)
  Sender: FDA-Public Use
  Company Number: IE-LUPIN PHARMACEUTICALS INC.-2020-11730

PATIENT
  Age: 58 Year
  Sex: Male

DRUGS (9)
  1. VORICONAZOLE. [Interacting]
     Active Substance: VORICONAZOLE
     Indication: BRONCHOPULMONARY ASPERGILLOSIS
     Dosage: UNK
     Route: 065
  2. POSACONAZOLE [Interacting]
     Active Substance: POSACONAZOLE
     Dosage: 600 MILLIGRAM, QD (DELAYED RELEASE), DOSE MODIFIED TO 300MG TWICE DAILY AND EVENTUALLY DISCONTINUED
     Route: 065
  3. RIFAMPIN. [Suspect]
     Active Substance: RIFAMPIN
     Indication: ATYPICAL MYCOBACTERIAL LOWER RESPIRATORY TRACT INFECTION
     Dosage: UNK
     Route: 065
  4. ETHAMBUTOL [Concomitant]
     Active Substance: ETHAMBUTOL HYDROCHLORIDE
     Indication: ATYPICAL MYCOBACTERIAL LOWER RESPIRATORY TRACT INFECTION
     Dosage: UNK
     Route: 065
  5. AZITHROMYCIN ANHYDROUS. [Concomitant]
     Active Substance: AZITHROMYCIN ANHYDROUS
     Indication: ATYPICAL MYCOBACTERIAL LOWER RESPIRATORY TRACT INFECTION
     Dosage: UNK
     Route: 065
  6. MOXIFLOXACIN. [Concomitant]
     Active Substance: MOXIFLOXACIN
     Indication: ATYPICAL MYCOBACTERIAL LOWER RESPIRATORY TRACT INFECTION
     Dosage: UNK
     Route: 065
  7. RIFABUTIN. [Interacting]
     Active Substance: RIFABUTIN
     Indication: ATYPICAL MYCOBACTERIAL LOWER RESPIRATORY TRACT INFECTION
     Dosage: UNK
     Route: 065
  8. POSACONAZOLE [Interacting]
     Active Substance: POSACONAZOLE
     Indication: BRONCHOPULMONARY ASPERGILLOSIS
     Dosage: 300 MILLIGRAM, QD (DELAYED RELEASE)
     Route: 065
  9. DOXYCYCLINE. [Concomitant]
     Active Substance: DOXYCYCLINE
     Indication: ATYPICAL MYCOBACTERIAL LOWER RESPIRATORY TRACT INFECTION
     Dosage: UNK
     Route: 065

REACTIONS (3)
  - Drug level increased [Unknown]
  - Iridocyclitis [Unknown]
  - Drug interaction [Unknown]
